FAERS Safety Report 5568479-X (Version None)
Quarter: 2007Q4

REPORT INFORMATION
  Report Type: 
  Country: None (occurrence: None)
  Receive Date: 20071130
  Receipt Date: 20070219
  Transmission Date: 20080405
  Serious: Yes (Other)
  Sender: FDA-Public Use
  Company Number: WAES 0608USA01932

PATIENT
  Age: 43 Year
  Sex: Male
  Weight: 78.9259 kg

DRUGS (11)
  1. FOSAMAX [Suspect]
     Indication: OSTEOPOROSIS
     Dosage: 70 MG WKY PO
     Route: 048
     Dates: start: 20020308, end: 20040101
  2. ZOMETA [Suspect]
     Indication: OSTEOPOROSIS
     Dosage: IV
     Route: 042
     Dates: start: 20040316, end: 20060101
  3. ALLEGRA [Concomitant]
  4. BENADRYL [Concomitant]
  5. LEXAPRO [Concomitant]
  6. MIRALAX [Concomitant]
  7. OXYCONTIN [Concomitant]
  8. THERAPY UNSPECIFIED [Concomitant]
  9. CALCIUM UNSPECIFIED [Concomitant]
  10. CLONAZEPAM [Concomitant]
  11. HYDROCODONE BITARTRATE [Concomitant]

REACTIONS (4)
  - DEPRESSION [None]
  - HERNIA [None]
  - OSTEONECROSIS [None]
  - PAIN [None]
